FAERS Safety Report 10577778 (Version 1)
Quarter: 2014Q4

REPORT INFORMATION
  Report Type: Spontaneous
  Country: US (occurrence: US)
  Receive Date: 20141111
  Receipt Date: 20141111
  Transmission Date: 20150529
  Serious: No
  Sender: FDA-Public Use
  Company Number: US-MALLINCKRODT-T201401841

PATIENT
  Sex: Male

DRUGS (1)
  1. PENNSAID [Suspect]
     Active Substance: DICLOFENAC SODIUM
     Indication: MUSCULOSKELETAL PAIN
     Dosage: 2 PUMPS BID
     Route: 061
     Dates: start: 201403

REACTIONS (3)
  - Dermatitis allergic [Not Recovered/Not Resolved]
  - Product use issue [Unknown]
  - Product colour issue [Recovered/Resolved]

NARRATIVE: CASE EVENT DATE: 201403
